FAERS Safety Report 8056788-4 (Version None)
Quarter: 2012Q1

REPORT INFORMATION
  Report Type: 
  Country: None (occurrence: None)
  Receive Date: 20120119
  Receipt Date: 20111228
  Transmission Date: 20120608
  Serious: Yes (Other)
  Sender: FDA-Public Use
  Company Number: US-GLAXOSMITHKLINE-A0959444A

PATIENT
  Sex: Female

DRUGS (1)
  1. TYKERB [Suspect]
     Indication: PRODUCT USED FOR UNKNOWN INDICATION
     Dosage: 1000MG PER DAY
     Route: 065
     Dates: start: 20111214

REACTIONS (6)
  - PAIN IN EXTREMITY [None]
  - OCULAR ICTERUS [None]
  - DRUG ADMINISTRATION ERROR [None]
  - ABDOMINAL DISCOMFORT [None]
  - CHEST PAIN [None]
  - DERMATITIS ACNEIFORM [None]
